FAERS Safety Report 4690853-4 (Version None)
Quarter: 2005Q2

REPORT INFORMATION
  Report Type: 
  Country: None (occurrence: None)
  Receive Date: 20050614
  Receipt Date: 20050531
  Transmission Date: 20051028
  Serious: Yes (Other)
  Sender: FDA-Public Use
  Company Number: 004975

PATIENT
  Age: 55 Year
  Sex: Female

DRUGS (3)
  1. MEDROXYPROGESTERON ACETATE(MEDROXYPROGESTERONE ACETATE)  TABLET, UNK [Suspect]
     Dosage: ORAL
     Route: 048
  2. PREMARIN [Suspect]
     Dosage: ORAL
     Route: 048
  3. PREMPRO [Suspect]
     Dosage: ORAL
     Route: 048

REACTIONS (1)
  - BREAST CANCER FEMALE [None]
